FAERS Safety Report 6738928-X (Version None)
Quarter: 2010Q2

REPORT INFORMATION
  Report Type: 
  Country: None (occurrence: None)
  Receive Date: 20100524
  Receipt Date: 20100518
  Transmission Date: 20101027
  Serious: Yes (Hospitalization, Disabling, Other)
  Sender: FDA-Public Use
  Company Number: US-MERCK-1005USA02527

PATIENT
  Age: 19 Year
  Sex: Male

DRUGS (2)
  1. SINGULAIR [Suspect]
     Indication: ASTHMA
     Route: 048
     Dates: start: 20090501
  2. PHENOBARBITAL [Concomitant]
     Indication: CONVULSION
     Route: 065

REACTIONS (3)
  - ASTHMA [None]
  - SPUTUM INCREASED [None]
  - WRONG TECHNIQUE IN DRUG USAGE PROCESS [None]
